FAERS Safety Report 7568783-X (Version None)
Quarter: 2011Q2

REPORT INFORMATION
  Report Type: 
  Country: None (occurrence: None)
  Receive Date: 20110623
  Receipt Date: 20110617
  Transmission Date: 20111010
  Serious: Yes (Hospitalization)
  Sender: FDA-Public Use
  Company Number: JP-ABBOTT-11P-087-0733600-00

PATIENT
  Sex: Male

DRUGS (15)
  1. BRONCHODILATOR [Concomitant]
     Indication: PRODUCT USED FOR UNKNOWN INDICATION
  2. ADONA [Concomitant]
     Indication: PANCYTOPENIA
     Route: 048
  3. FERO-GRADUMET [Concomitant]
     Indication: PANCYTOPENIA
     Route: 048
  4. LOXONIN [Concomitant]
     Dates: start: 20110521
  5. TRANSAMIN [Concomitant]
     Indication: PANCYTOPENIA
     Route: 048
  6. GLAKAY [Concomitant]
     Indication: PANCYTOPENIA
     Route: 048
  7. CLARITHROMYCIN [Suspect]
     Dosage: 400 MG DAILY
     Dates: start: 20110511
  8. CINAL [Concomitant]
     Indication: PANCYTOPENIA
     Route: 048
  9. ADALAT [Concomitant]
     Indication: PRODUCT USED FOR UNKNOWN INDICATION
     Dosage: MORNING
     Route: 048
  10. CLARITHROMYCIN [Suspect]
     Indication: NASOPHARYNGITIS
     Dosage: 400 MG DAILY
     Route: 048
     Dates: start: 20110421, end: 20110504
  11. LOXONIN [Concomitant]
     Indication: NASOPHARYNGITIS
     Route: 048
     Dates: start: 20110421
  12. LIPODOWN [Concomitant]
     Indication: PRODUCT USED FOR UNKNOWN INDICATION
     Dosage: MORNING
     Route: 048
  13. EXPECTORANT [Concomitant]
     Indication: PRODUCT USED FOR UNKNOWN INDICATION
  14. LANSOPRAZOLE [Concomitant]
     Indication: PRODUCT USED FOR UNKNOWN INDICATION
     Route: 048
  15. MAGNESIUM SULFATE [Concomitant]
     Indication: PRODUCT USED FOR UNKNOWN INDICATION
     Route: 048

REACTIONS (6)
  - RENAL DISORDER [None]
  - FATIGUE [None]
  - PYREXIA [None]
  - BLOOD UREA ABNORMAL [None]
  - BLOOD CREATININE ABNORMAL [None]
  - RENAL IMPAIRMENT [None]
